FAERS Safety Report 23669534 (Version 1)
Quarter: 2024Q1

REPORT INFORMATION
  Report Type: Spontaneous
  Country: GB (occurrence: GB)
  Receive Date: 20240325
  Receipt Date: 20240325
  Transmission Date: 20240409
  Serious: Yes (Life-Threatening, Hospitalization, Disabling)
  Sender: FDA-Public Use
  Company Number: GB-LIPOMEDP-003678

PATIENT
  Age: 67 Year
  Sex: Male
  Weight: 65 kg

DRUGS (12)
  1. CIPROFLOXACIN [Suspect]
     Active Substance: CIPROFLOXACIN
     Indication: Antibiotic prophylaxis
     Dosage: 500 MG, BID
     Route: 048
     Dates: start: 20080627, end: 20080706
  2. CLADRIBINE [Suspect]
     Active Substance: CLADRIBINE
     Indication: Hairy cell leukaemia
     Route: 058
     Dates: start: 20080701, end: 20080705
  3. ACYCLOVIR [Suspect]
     Active Substance: ACYCLOVIR
     Indication: Antiviral prophylaxis
     Dosage: 400 MG, UNK
     Route: 048
     Dates: start: 20080630, end: 20080709
  4. ALLOPURINOL [Suspect]
     Active Substance: ALLOPURINOL
     Indication: Tumour lysis syndrome
     Dosage: 100 MG, UNK
     Route: 048
  5. AMPHOTERICIN B [Suspect]
     Active Substance: AMPHOTERICIN B
     Indication: Product used for unknown indication
     Dates: start: 20080627, end: 20080706
  6. BENDROFLUMETHIAZIDE [Suspect]
     Active Substance: BENDROFLUMETHIAZIDE
     Indication: Hypertension
     Dosage: 2.5 MG, UNK
     Route: 048
  7. CEFTAZIDIME [Suspect]
     Active Substance: CEFTAZIDIME
     Indication: Pyrexia
     Dates: start: 20080627, end: 20080629
  8. CLARITHROMYCIN [Suspect]
     Active Substance: CLARITHROMYCIN
     Indication: Pyrexia
     Dates: start: 20080627, end: 20080629
  9. COTRIMOXAZOLE [Suspect]
     Active Substance: SULFAMETHOXAZOLE\TRIMETHOPRIM
     Indication: Antifungal prophylaxis
     Dosage: 960 MG, UNK
     Route: 048
     Dates: start: 20080702, end: 20080704
  10. ITRACONAZOLE [Suspect]
     Active Substance: ITRACONAZOLE
     Indication: Antifungal prophylaxis
     Dates: start: 20080627, end: 20080706
  11. SIMVASTATIN [Suspect]
     Active Substance: SIMVASTATIN
     Indication: Hyperlipidaemia
     Dosage: 20 MG, UNK
     Route: 048
  12. ZOPICLONE [Suspect]
     Active Substance: ZOPICLONE
     Indication: Product used for unknown indication
     Dates: start: 20080627, end: 20080706

REACTIONS (14)
  - Cutaneous vasculitis [Recovered/Resolved]
  - Acute myocardial infarction [Recovered/Resolved]
  - Bradyarrhythmia [Recovered/Resolved]
  - Hyperbilirubinaemia [Recovered/Resolved]
  - Disseminated intravascular coagulation [Recovered/Resolved]
  - Hypotension [Recovered/Resolved]
  - Renal impairment [Recovering/Resolving]
  - Septic shock [Recovered/Resolved]
  - Swelling face [Recovered/Resolved]
  - Pyrexia [Recovered/Resolved]
  - Thrombocytopenia [None]
  - Disseminated intravascular coagulation [None]
  - Vasculitic rash [None]
  - Rash [None]

NARRATIVE: CASE EVENT DATE: 20080705
